FAERS Safety Report 9237295 (Version 5)
Quarter: 2016Q1

REPORT INFORMATION
  Report Type: Spontaneous
  Country: US (occurrence: US)
  Receive Date: 20130417
  Receipt Date: 20160329
  Transmission Date: 20160526
  Serious: No
  Sender: FDA-Public Use
  Company Number: US-009507513-1304USA006795

PATIENT
  Sex: Male
  Weight: 139.68 kg

DRUGS (3)
  1. PROPECIA [Suspect]
     Active Substance: FINASTERIDE
     Indication: ANDROGENETIC ALOPECIA
     Dosage: 1 MG, UNKNOWN
     Route: 048
     Dates: start: 200101
  2. PROSCAR [Suspect]
     Active Substance: FINASTERIDE
     Indication: ANDROGENETIC ALOPECIA
     Dosage: 5 MG, QD
     Route: 048
     Dates: start: 2001, end: 200503
  3. FINASTERIDE. [Suspect]
     Active Substance: FINASTERIDE
     Indication: ANDROGENETIC ALOPECIA
     Dosage: UNK, UNKNOWN
     Route: 048
     Dates: start: 20020202

REACTIONS (25)
  - Anxiety [Not Recovered/Not Resolved]
  - Skin disorder [Unknown]
  - Drug administration error [Unknown]
  - Sexual dysfunction [Not Recovered/Not Resolved]
  - Hypertension [Not Recovered/Not Resolved]
  - Diabetes mellitus [Not Recovered/Not Resolved]
  - Adjustment disorder [Unknown]
  - Depression [Not Recovered/Not Resolved]
  - Folliculitis [Not Recovered/Not Resolved]
  - Insomnia [Not Recovered/Not Resolved]
  - Hyperlipidaemia [Not Recovered/Not Resolved]
  - Asthma [Not Recovered/Not Resolved]
  - Fatigue [Unknown]
  - Testicular pain [Unknown]
  - Genital discomfort [Unknown]
  - Acne [Not Recovered/Not Resolved]
  - Androgen deficiency [Not Recovered/Not Resolved]
  - Mental impairment [Unknown]
  - Mood swings [Unknown]
  - Semen volume decreased [Unknown]
  - Oedema peripheral [Not Recovered/Not Resolved]
  - Dyspnoea [Unknown]
  - Stress [Not Recovered/Not Resolved]
  - Asthenia [Unknown]
  - Erectile dysfunction [Not Recovered/Not Resolved]

NARRATIVE: CASE EVENT DATE: 200106
